FAERS Safety Report 8483317-3 (Version None)
Quarter: 2012Q3

REPORT INFORMATION
  Report Type: 
  Country: None (occurrence: None)
  Receive Date: 20120702
  Receipt Date: 20120626
  Transmission Date: 20120928
  Serious: Yes (Other)
  Sender: FDA-Public Use
  Company Number: US-BAYER-2012-063834

PATIENT
  Age: 80 Year
  Sex: Female

DRUGS (3)
  1. NEXAVAR [Suspect]
     Indication: HEPATIC NEOPLASM MALIGNANT
     Dosage: 200 MG, BID
     Dates: start: 20120522, end: 20120601
  2. NEXAVAR [Suspect]
     Dosage: DAILY DOSE 600 MG
     Dates: start: 20120601, end: 20120611
  3. NEXAVAR [Suspect]
     Dosage: 200 MG, BID
     Dates: start: 20120612

REACTIONS (5)
  - FATIGUE [None]
  - SYNCOPE [None]
  - BLISTER [None]
  - PAIN [None]
  - NAUSEA [None]
